FAERS Safety Report 7356484-2 (Version None)
Quarter: 2011Q1

REPORT INFORMATION
  Report Type: 
  Country: None (occurrence: None)
  Receive Date: 20110316
  Receipt Date: 20110301
  Transmission Date: 20110831
  Serious: Yes (Hospitalization, Other)
  Sender: FDA-Public Use
  Company Number: PHHY2011US16826

PATIENT
  Sex: Male
  Weight: 91.156 kg

DRUGS (20)
  1. METHYLPREDNISOLONE [Concomitant]
     Dates: start: 20101217
  2. FENOFIBRATE [Concomitant]
     Dates: start: 20100215
  3. LISINOPRIL AND HYDROCHLOROTHIAZIDE [Concomitant]
     Dates: start: 20090605
  4. PROVENGE [Suspect]
     Indication: PROSTATE CANCER
     Dosage: 250 ML, SINGLE
     Route: 042
     Dates: start: 20101018
  5. LEUPROLIDE ACETATE [Concomitant]
     Dates: start: 20100315
  6. SIMVASTATIN [Concomitant]
     Dates: start: 20091112
  7. TRAMADOL HCL [Concomitant]
     Dates: start: 20101101
  8. ASPIRIN [Concomitant]
     Dates: start: 20080919
  9. PROVENGE [Suspect]
     Dosage: 250 ML, SINGLE
     Route: 042
     Dates: start: 20101119
  10. LACTULOSE [Concomitant]
     Dates: start: 20101227
  11. MELOXICAM [Concomitant]
     Dates: start: 20100209
  12. ATENOLOL [Concomitant]
     Dates: start: 20090605
  13. ZOMETA [Suspect]
     Indication: METASTATIC NEOPLASM
     Dates: start: 20090301
  14. ACETAMINOPHEN AND OXYCODONE HCL [Concomitant]
     Dates: start: 20101227
  15. CALCIUM CARBONATE W/COLECALCIFEROL [Concomitant]
     Dates: start: 20100720
  16. PROVENGE [Suspect]
     Dosage: 250 ML, SINGLE
     Route: 042
     Dates: start: 20101105
  17. OMEPRAZOLE [Concomitant]
     Dates: start: 20101228
  18. BACLOFEN [Concomitant]
     Dates: start: 20091203
  19. AREDIA [Suspect]
     Indication: METASTATIC NEOPLASM
  20. ONDANSETRON [Concomitant]
     Dates: start: 20101105

REACTIONS (14)
  - AORTIC ARTERIOSCLEROSIS [None]
  - NEOPLASM MALIGNANT [None]
  - FATIGUE [None]
  - INGUINAL HERNIA [None]
  - OCCULT BLOOD POSITIVE [None]
  - JOINT CONTRACTURE [None]
  - MUSCULOSKELETAL CHEST PAIN [None]
  - BLOOD TESTOSTERONE DECREASED [None]
  - PROSTATIC SPECIFIC ANTIGEN INCREASED [None]
  - ANAEMIA OF CHRONIC DISEASE [None]
  - MYALGIA [None]
  - UMBILICAL HERNIA [None]
  - ATRIOVENTRICULAR BLOCK [None]
  - GENERAL PHYSICAL HEALTH DETERIORATION [None]
